FAERS Safety Report 18693106 (Version 1)
Quarter: 2021Q1

REPORT INFORMATION
  Report Type: Spontaneous
  Country: US (occurrence: US)
  Receive Date: 20210104
  Receipt Date: 20210104
  Transmission Date: 20210419
  Serious: No
  Sender: FDA-Public Use
  Company Number: US-GILEAD-2020-0510767

PATIENT
  Sex: Male

DRUGS (7)
  1. OLANZAPINE. [Concomitant]
     Active Substance: OLANZAPINE
  2. ALPRAZOLAM. [Concomitant]
     Active Substance: ALPRAZOLAM
  3. STOOL SOFTENER (DOCUSATE) [Concomitant]
     Active Substance: DOCUSATE
  4. VRAYLAR [Concomitant]
     Active Substance: CARIPRAZINE
  5. LEVOTHYROXINE SODIUM. [Concomitant]
     Active Substance: LEVOTHYROXINE SODIUM
  6. EPCLUSA [Suspect]
     Active Substance: SOFOSBUVIR\VELPATASVIR
     Indication: CHRONIC HEPATITIS C
     Dosage: 1 DOSAGE FORM, QD
     Route: 048
  7. FUROSEMIDE. [Concomitant]
     Active Substance: FUROSEMIDE

REACTIONS (1)
  - Product dose omission issue [Recovered/Resolved]
